FAERS Safety Report 8007923-5 (Version None)
Quarter: 2011Q4

REPORT INFORMATION
  Report Type: 
  Country: None (occurrence: None)
  Receive Date: 20111221
  Receipt Date: 20111206
  Transmission Date: 20120403
  Serious: Yes (Other)
  Sender: FDA-Public Use
  Company Number: 2011P1009373

PATIENT
  Age: 65 Year
  Sex: Female
  Weight: 83.9154 kg

DRUGS (9)
  1. PREDNISONE TAB [Suspect]
     Dosage: 20 MG;
     Dates: end: 20110823
  2. EFFEXOR [Concomitant]
  3. VERAPAMIL [Concomitant]
  4. SOLODYN [Suspect]
     Indication: ACNE
     Dosage: 115 MG;QD;PO
     Route: 048
     Dates: start: 20110701, end: 20110830
  5. PRINZIDE [Concomitant]
  6. PRINIVIL [Concomitant]
  7. NOVALOG  INSULIN [Concomitant]
  8. ADAPALENE [Suspect]
     Indication: ACNE
     Dosage: 1 PCT;5 TIMES WK;TOP
     Route: 061
     Dates: start: 20110701
  9. PUMP [Concomitant]

REACTIONS (7)
  - CONFUSIONAL STATE [None]
  - HYPOAESTHESIA [None]
  - GLYCOSYLATED HAEMOGLOBIN INCREASED [None]
  - DIZZINESS [None]
  - BLOOD GLUCOSE INCREASED [None]
  - LETHARGY [None]
  - DRUG DISPENSING ERROR [None]
